FAERS Safety Report 7967638-6 (Version None)
Quarter: 2011Q4

REPORT INFORMATION
  Report Type: 
  Country: None (occurrence: None)
  Receive Date: 20111208
  Receipt Date: 20111208
  Transmission Date: 20120403
  Serious: Yes (Other)
  Sender: FDA-Public Use
  Company Number: None

PATIENT
  Age: 67 Year
  Sex: Female

DRUGS (8)
  1. LORAZEPAM [Concomitant]
  2. TRAZODONE HCL [Concomitant]
  3. SERTRALINE HYDROCHLORIDE [Concomitant]
  4. LISINOPRIL [Concomitant]
  5. REVLIMID [Suspect]
     Indication: MULTIPLE MYELOMA
     Dosage: REVLIMID 25 MG DAILY X21D/28D ORALLY
     Route: 048
     Dates: start: 20111001
  6. PROCHLORPERAZINE [Concomitant]
  7. HYDROCODONE BITARTRATE AND ACETAMINOPHEN [Concomitant]
  8. REGULAR INSULIN [Concomitant]

REACTIONS (1)
  - DEEP VEIN THROMBOSIS [None]
